FAERS Safety Report 22595300 (Version 1)
Quarter: 2023Q2

REPORT INFORMATION
  Report Type: Spontaneous
  Country: US (occurrence: None)
  Receive Date: 20230612
  Receipt Date: 20230612
  Transmission Date: 20230721
  Serious: Yes (Hospitalization)
  Sender: FDA-Public Use
  Company Number: None

PATIENT
  Age: 64 Year
  Sex: Male
  Weight: 59.1 kg

DRUGS (1)
  1. VENOFER [Suspect]
     Active Substance: IRON SUCROSE
     Indication: Iron deficiency anaemia
     Route: 041
     Dates: start: 20230511, end: 20230511

REACTIONS (4)
  - Pyrexia [None]
  - Vision blurred [None]
  - Infusion related reaction [None]
  - Illness [None]

NARRATIVE: CASE EVENT DATE: 20230511
